FAERS Safety Report 15081538 (Version 1)
Quarter: 2018Q2

REPORT INFORMATION
  Report Type: Spontaneous
  Country: US (occurrence: US)
  Receive Date: 20180607
  Receipt Date: 20180607
  Transmission Date: 20180711
  Serious: Yes (Other)
  Sender: FDA-Public Use
  Company Number: None

PATIENT
  Age: 9 Year
  Sex: Female
  Weight: 29.25 kg

DRUGS (3)
  1. AMOX TR - KCLV 400 - 57/5 SUSP (AMOXICILLIN AND CLAVULANATE POTASSIUM) [Suspect]
     Active Substance: AMOXICILLIN\CLAVULANATE POTASSIUM
     Indication: PERIPHERAL SWELLING
     Dosage: ?          QUANTITY:5 ML;?
     Route: 048
     Dates: start: 20180602, end: 20180607
  2. COD LIVER OIL [Concomitant]
     Active Substance: COD LIVER OIL
  3. AMOX TR - KCLV 400 - 57/5 SUSP (AMOXICILLIN AND CLAVULANATE POTASSIUM) [Suspect]
     Active Substance: AMOXICILLIN\CLAVULANATE POTASSIUM
     Indication: ARTHROPOD BITE
     Dosage: ?          QUANTITY:5 ML;?
     Route: 048
     Dates: start: 20180602, end: 20180607

REACTIONS (1)
  - Tooth discolouration [None]

NARRATIVE: CASE EVENT DATE: 20180607
